FAERS Safety Report 6595656-1 (Version None)
Quarter: 2010Q1

REPORT INFORMATION
  Report Type: 
  Country: None (occurrence: None)
  Receive Date: 20100216
  Receipt Date: 20100201
  Transmission Date: 20100710
  Serious: Yes (Hospitalization)
  Sender: FDA-Public Use
  Company Number: AMAG201000062

PATIENT
  Age: 77 Year
  Sex: Female
  Weight: 100.2 kg

DRUGS (18)
  1. FERAHEME [Suspect]
     Indication: IRON DEFICIENCY ANAEMIA
     Dosage: 510 MG, SINGLE, INTRAVENOUS
     Route: 042
     Dates: start: 20100201, end: 20100201
  2. HYDRALAZINE (HYDRALAZINE HYDROCHLORIDE) [Concomitant]
  3. IMDUR [Concomitant]
  4. ZOCOR [Concomitant]
  5. FELODIPINE [Concomitant]
  6. METOLAZONE [Concomitant]
  7. LASIX [Concomitant]
  8. NEXIUM [Concomitant]
  9. MINOXIDIL [Concomitant]
  10. HECTOROL [Concomitant]
  11. ASPIRIN [Concomitant]
  12. METOPROLOL TARTRATE [Concomitant]
  13. VITAMIN E (TOCOPHERYL ACETATE) [Concomitant]
  14. VITAMIN D [Concomitant]
  15. LANTUS  HUMALOG (INSULIN LISPRO) [Concomitant]
  16. ALBUTEROL (SALBUTAMOL SULFATE) [Concomitant]
  17. NITROGLYCERIN [Concomitant]
  18. PROCRIT [Concomitant]

REACTIONS (7)
  - CHEST DISCOMFORT [None]
  - HYPERSENSITIVITY [None]
  - HYPOTENSION [None]
  - NAUSEA [None]
  - SWOLLEN TONGUE [None]
  - UNRESPONSIVE TO STIMULI [None]
  - VOMITING [None]
